FAERS Safety Report 9347452 (Version 13)
Quarter: 2015Q1

REPORT INFORMATION
  Report Type: Report from Study
  Country: CA (occurrence: CA)
  Receive Date: 20130614
  Receipt Date: 20150129
  Transmission Date: 20150721
  Serious: Yes (Other)
  Sender: FDA-Public Use
  Company Number: CA-ROCHE-1236660

PATIENT
  Age: 32 Year
  Sex: Female
  Weight: 115.77 kg

DRUGS (6)
  1. ACTEMRA [Suspect]
     Active Substance: TOCILIZUMAB
     Indication: TAKAYASU^S ARTERITIS
     Dosage: TIME OF EXPOSURE: PRE-CONCEPTION AND 1ST TRIMESTER
     Route: 042
     Dates: start: 20120508
  2. ASA [Concomitant]
     Active Substance: ASPIRIN
     Route: 065
  3. PREDNISONE. [Concomitant]
     Active Substance: PREDNISONE
     Route: 048
  4. ATENOLOL. [Concomitant]
     Active Substance: ATENOLOL
  5. RABEPRAZOLE [Concomitant]
     Active Substance: RABEPRAZOLE
     Route: 048
  6. LABETALOL [Concomitant]
     Active Substance: LABETALOL\LABETALOL HYDROCHLORIDE
     Route: 048

REACTIONS (10)
  - Blood pressure increased [Unknown]
  - Hypotension [Unknown]
  - Abortion spontaneous [Unknown]
  - Dehydration [Unknown]
  - Maternal exposure during pregnancy [Unknown]
  - Blood pressure increased [Unknown]
  - Infusion related reaction [Unknown]
  - Weight increased [Unknown]
  - Weight decreased [Unknown]
  - Off label use [Unknown]

NARRATIVE: CASE EVENT DATE: 20130611
